FAERS Safety Report 4640593-2 (Version None)
Quarter: 2005Q2

REPORT INFORMATION
  Report Type: 
  Country: None (occurrence: None)
  Receive Date: 20050419
  Receipt Date: 20050408
  Transmission Date: 20051028
  Serious: Yes (Other)
  Sender: FDA-Public Use
  Company Number: 213670

PATIENT
  Age: 53 Year
  Sex: Male

DRUGS (7)
  1. RITUXIMAB (RITUXIMAB) CONC FOR SOLUTION FOR INFUSION [Suspect]
     Indication: LYMPHOMA
     Dosage: 680 MG, INTRAVENOUS
     Route: 042
     Dates: start: 20041224
  2. METHOTREXATE [Suspect]
     Indication: LYMPHOMA
     Dosage: 1600 MG, INTRAVENOUS
     Route: 042
     Dates: start: 20041226
  3. CYTARABINE [Suspect]
     Indication: LYMPHOMA
     Dosage: 7200 MG, INTRAVENOUS
     Route: 042
     Dates: start: 20041227
  4. CYCLOPHOSPHAMIDE [Concomitant]
  5. DOXORUBICIN HCL [Concomitant]
  6. VINCRISTINE [Concomitant]
  7. DEXAMETHASONE [Concomitant]

REACTIONS (2)
  - NEUTROPENIA [None]
  - WHITE BLOOD CELL COUNT DECREASED [None]
